FAERS Safety Report 7561634-9 (Version None)
Quarter: 2011Q2

REPORT INFORMATION
  Report Type: 
  Country: None (occurrence: None)
  Receive Date: 20110621
  Receipt Date: 20110613
  Transmission Date: 20111010
  Serious: No
  Sender: FDA-Public Use
  Company Number: US-US-EMD SERONO, INC.-7063255

PATIENT
  Sex: Female
  Weight: 109 kg

DRUGS (19)
  1. TRUVADA [Concomitant]
  2. CALCIUM CARBONATE [Concomitant]
  3. NORVIR [Concomitant]
  4. LOVAZA [Concomitant]
  5. OMEPRAZOLE [Concomitant]
  6. ALLEGRA [Concomitant]
  7. EGRIFTA [Suspect]
     Indication: LIPODYSTROPHY ACQUIRED
     Dates: start: 20110331, end: 20110516
  8. FLUTICASONE CREAM [Concomitant]
  9. LEXIVA [Concomitant]
  10. ENALAPRIL MALEATE [Concomitant]
  11. XANAX [Concomitant]
  12. NASONEX [Concomitant]
  13. SINGULAIR [Concomitant]
  14. EPIPEN [Concomitant]
  15. VITAMIN D [Concomitant]
  16. VASOTEC [Concomitant]
  17. PROAIR HFA [Concomitant]
  18. VESICARE [Concomitant]
  19. METFORMIN HCL [Concomitant]

REACTIONS (4)
  - MUSCLE SPASMS [None]
  - DIZZINESS [None]
  - NAUSEA [None]
  - MYALGIA [None]
